FAERS Safety Report 25471141 (Version 1)
Quarter: 2025Q2

REPORT INFORMATION
  Report Type: Report from Study
  Country: US (occurrence: US)
  Receive Date: 20250624
  Receipt Date: 20250624
  Transmission Date: 20250716
  Serious: Yes (Hospitalization, Other)
  Sender: TAKEDA
  Company Number: US-TAKEDA-2023TUS110782

PATIENT
  Age: 5 Year
  Sex: Female
  Weight: 14 kg

DRUGS (35)
  1. TEDUGLUTIDE [Suspect]
     Active Substance: TEDUGLUTIDE
     Indication: Short-bowel syndrome
     Dosage: 0.7 MILLIGRAM, QD
  2. TEDUGLUTIDE [Suspect]
     Active Substance: TEDUGLUTIDE
     Dosage: 0.7 MILLIGRAM, QD
  3. TEDUGLUTIDE [Suspect]
     Active Substance: TEDUGLUTIDE
     Dosage: 0.7 MILLIGRAM, QD
  4. TEDUGLUTIDE [Suspect]
     Active Substance: TEDUGLUTIDE
     Dosage: 0.7 MILLIGRAM, QD
  5. TEDUGLUTIDE [Suspect]
     Active Substance: TEDUGLUTIDE
     Dosage: 0.7 MILLIGRAM, QD
  6. TEDUGLUTIDE [Suspect]
     Active Substance: TEDUGLUTIDE
     Dosage: 0.7 MILLIGRAM, QD
  7. TEDUGLUTIDE [Suspect]
     Active Substance: TEDUGLUTIDE
     Dosage: 0.7 MILLIGRAM, QD
  8. TEDUGLUTIDE [Suspect]
     Active Substance: TEDUGLUTIDE
     Dosage: 0.7 MILLIGRAM, QD
  9. TEDUGLUTIDE [Suspect]
     Active Substance: TEDUGLUTIDE
     Dosage: 0.7 MILLIGRAM, QD
  10. TEDUGLUTIDE [Suspect]
     Active Substance: TEDUGLUTIDE
     Dosage: 0.7 MILLIGRAM, QD
  11. TEDUGLUTIDE [Suspect]
     Active Substance: TEDUGLUTIDE
     Dosage: 0.7 MILLIGRAM, QD
  12. TEDUGLUTIDE [Suspect]
     Active Substance: TEDUGLUTIDE
     Dosage: 0.9 MILLIGRAM, QD
  13. HERBALS [Suspect]
     Active Substance: HERBALS
     Indication: Product used for unknown indication
  14. SMOFLIPID [Concomitant]
     Active Substance: FISH OIL\MEDIUM-CHAIN TRIGLYCERIDES\OLIVE OIL\SOYBEAN OIL
  15. TPN [Concomitant]
     Active Substance: AMINO ACIDS\DEXTROSE\ELECTROLYTES NOS\SOYBEAN OIL
  16. METRONIDAZOLE [Concomitant]
     Active Substance: METRONIDAZOLE
  17. FLAGYL [Concomitant]
     Active Substance: METRONIDAZOLE\METRONIDAZOLE HYDROCHLORIDE
  18. CETIRIZINE HCL [Concomitant]
     Active Substance: CETIRIZINE HYDROCHLORIDE
  19. SCOPOLAMINE [Concomitant]
     Active Substance: SCOPOLAMINE
  20. FLUTICASONE PROPIONATE [Concomitant]
     Active Substance: FLUTICASONE PROPIONATE
  21. NYSTATIN [Concomitant]
     Active Substance: NYSTATIN
  22. LOPERAMIDE [Concomitant]
     Active Substance: LOPERAMIDE
  23. CYPROHEPTADINE HYDROCHLORIDE [Concomitant]
     Active Substance: CYPROHEPTADINE HYDROCHLORIDE
  24. ERYTHROMYCIN ETHYLSUCCINATE [Concomitant]
     Active Substance: ERYTHROMYCIN ETHYLSUCCINATE
  25. ONDANSETRON [Concomitant]
     Active Substance: ONDANSETRON
  26. FAMOTIDINE [Concomitant]
     Active Substance: FAMOTIDINE
  27. INFUVITE PEDIATRIC [Concomitant]
     Active Substance: .ALPHA.-TOCOPHEROL ACETATE\ASCORBIC ACID\BIOTIN\CHOLECALCIFEROL\CYANOCOBALAMIN\DEXPANTHENOL\FOLIC AC
  28. SODIUM CHLORIDE [Concomitant]
     Active Substance: SODIUM CHLORIDE
  29. HYOSCYAMINE SULFATE [Concomitant]
     Active Substance: HYOSCYAMINE SULFATE
  30. SULFASALAZINE [Concomitant]
     Active Substance: SULFASALAZINE
  31. SINGULAIR [Concomitant]
     Active Substance: MONTELUKAST SODIUM
  32. MUCINEX [Concomitant]
     Active Substance: GUAIFENESIN
  33. PEDIALYTE [Concomitant]
     Active Substance: POTASSIUM CITRATE\SODIUM CITRATE\ZINC
  34. ESOMEPRAZOLE MAGNESIUM [Concomitant]
     Active Substance: ESOMEPRAZOLE MAGNESIUM
  35. RIFAMPIN [Concomitant]
     Active Substance: RIFAMPIN

REACTIONS (33)
  - Intestinal pseudo-obstruction [Unknown]
  - Diarrhoea [Unknown]
  - Sinus disorder [Unknown]
  - Viral infection [Unknown]
  - Food intolerance [Not Recovered/Not Resolved]
  - Gastrointestinal disorder [Recovering/Resolving]
  - Weight decreased [Recovering/Resolving]
  - Abdominal discomfort [Unknown]
  - Multiple allergies [Unknown]
  - Gastrointestinal stoma output abnormal [Recovering/Resolving]
  - Hyperphagia [Recovered/Resolved]
  - Weight increased [Recovered/Resolved]
  - Pallor [Unknown]
  - Hypophagia [Recovered/Resolved]
  - Product distribution issue [Unknown]
  - Product dose omission issue [Recovered/Resolved]
  - Diversion colitis [Unknown]
  - Ear disorder [Unknown]
  - Lactase deficiency [Unknown]
  - Nocturia [Unknown]
  - Illness [Unknown]
  - Rhinovirus infection [Unknown]
  - Gastrointestinal infection [Unknown]
  - COVID-19 [Unknown]
  - Appetite disorder [Recovering/Resolving]
  - Injection site pain [Unknown]
  - Nausea [Unknown]
  - Nasopharyngitis [Recovered/Resolved]
  - Decreased appetite [Recovering/Resolving]
  - Cough [Unknown]
  - Vomiting [Unknown]
  - Gastrointestinal stoma complication [Unknown]
  - Abdominal pain [Recovered/Resolved]

NARRATIVE: CASE EVENT DATE: 20241213
